FAERS Safety Report 9424340 (Version 2)
Quarter: 2013Q3

REPORT INFORMATION
  Report Type: Spontaneous
  Country: GB (occurrence: None)
  Receive Date: 20130724
  Receipt Date: 20130806
  Transmission Date: 20140515
  Serious: Yes (Death)
  Sender: FDA-Public Use
  Company Number: 2013MPI00429

PATIENT
  Age: 52 Year
  Sex: Male

DRUGS (25)
  1. ADCETRIS [Suspect]
     Indication: HODGKIN^S DISEASE
     Dates: start: 20130612
  2. ADCETRIS [Suspect]
     Indication: HIV INFECTION
     Dates: start: 20130612
  3. RITONAVIR [Suspect]
     Indication: HIV INFECTION
     Route: 048
  4. ETRAVIRINE (ETRAVIRINE) [Concomitant]
  5. DARUNAVIR (DARUNAVIR) [Concomitant]
  6. LAMIVUDINE [Concomitant]
  7. RALTEGRAVIR (RALTEGRAVIR) [Concomitant]
  8. MARAVIROC (MARAVIROC) [Concomitant]
  9. ACICLOVIR (ACICLOVIR SODIUM) [Concomitant]
  10. FLUCONAZOLE (FLUCONAZOLE) [Concomitant]
  11. CO-TRIMAZOLE (CO-TRIMAZOLE) [Concomitant]
  12. ALLOPURINOL [Concomitant]
  13. MACROGOL (MACROGOL) [Concomitant]
  14. ATORVASTATIN (ATORVASTATIN CALCIUM) [Concomitant]
  15. DEXAMETHASONE (DEXAMETHASONE SODIUM PHOSPHATE) [Concomitant]
  16. HUMAN INSULATARD (INSULIN HUMAN INJECTION, ISOPHANE) [Concomitant]
  17. GLICLAZIDE (GLICLAZIDE) [Concomitant]
  18. OMEPRAZOLE (OMEPRAZOLE) [Concomitant]
  19. HALOPERIDOL (HALOPERIDOL DECANOATE) [Concomitant]
  20. DOMPERIDONE (DOMPERIDONE) [Concomitant]
  21. ONDANSETRON (ONDANSETRON) [Concomitant]
  22. CYCLIZINE (CYCLIZINE) [Concomitant]
  23. PIPERACILLIN W/TAZOBACTAM (PIPERACILLIN W/TAZOBACTAM) [Concomitant]
  24. BACLOFEN (BACLOFEN) [Concomitant]
  25. RANITIDINE (RANITIDINE HYDROCHLORIDE) [Concomitant]

REACTIONS (8)
  - Sepsis [None]
  - Renal failure acute [None]
  - Pathogen resistance [None]
  - Diabetic hyperosmolar coma [None]
  - Oedema [None]
  - Blood sodium decreased [None]
  - Hyperglycaemia [None]
  - Dehydration [None]
